FAERS Safety Report 7001107-5 (Version None)
Quarter: 2010Q3

REPORT INFORMATION
  Report Type: 
  Country: None (occurrence: None)
  Receive Date: 20100920
  Receipt Date: 20100909
  Transmission Date: 20110219
  Serious: Yes (Hospitalization)
  Sender: FDA-Public Use
  Company Number: DE-SANOFI-AVENTIS-2010SA054082

PATIENT
  Age: 81 Year
  Sex: Female
  Weight: 69.5 kg

DRUGS (5)
  1. FUROSEMIDE [Suspect]
     Route: 065
  2. EVEROLIMUS [Suspect]
     Indication: RENAL CELL CARCINOMA
     Route: 048
  3. METAMIZOLE [Concomitant]
  4. AMLODIPINE/VALSARTAN [Concomitant]
  5. GABAPENTIN [Concomitant]

REACTIONS (2)
  - GENERAL PHYSICAL HEALTH DETERIORATION [None]
  - RENAL IMPAIRMENT [None]
